FAERS Safety Report 9012541 (Version 2)
Quarter: 2014Q1

REPORT INFORMATION
  Report Type: Spontaneous
  Country: US (occurrence: US)
  Receive Date: 20130114
  Receipt Date: 20140328
  Transmission Date: 20141002
  Serious: Yes (Hospitalization, Other)
  Sender: FDA-Public Use
  Company Number: US-009507513-1301USA005128

PATIENT
  Sex: Female
  Weight: 187.76 kg

DRUGS (1)
  1. NUVARING [Suspect]
     Indication: CONTRACEPTION
     Dosage: UNK
     Route: 067
     Dates: start: 200604, end: 200608

REACTIONS (21)
  - Pulmonary embolism [Unknown]
  - Coagulopathy [Unknown]
  - Deep vein thrombosis [Unknown]
  - Nasopharyngitis [Unknown]
  - Pneumonia [Unknown]
  - Obesity [Unknown]
  - Osteoarthritis [Unknown]
  - Back pain [Unknown]
  - Bacterial vaginosis [Unknown]
  - Pain in extremity [Unknown]
  - Deep vein thrombosis [Unknown]
  - Local swelling [Unknown]
  - Cough [Unknown]
  - Respiratory tract congestion [Unknown]
  - Dyspnoea [Unknown]
  - Chest pain [Unknown]
  - Bacterial vaginosis [Unknown]
  - Physical abuse [Unknown]
  - Emphysema [Unknown]
  - Maternal exposure before pregnancy [Unknown]
  - Headache [Unknown]
